FAERS Safety Report 17035348 (Version 1)
Quarter: 2019Q4

REPORT INFORMATION
  Report Type: Spontaneous
  Country: MY (occurrence: MY)
  Receive Date: 20191115
  Receipt Date: 20191115
  Transmission Date: 20200122
  Serious: Yes (Other)
  Sender: FDA-Public Use
  Company Number: MY-AMERIGEN PHARMACEUTICALS, INC-2019AMG000046

PATIENT

DRUGS (3)
  1. TRANEXAMIC ACID UNKNOWN [Suspect]
     Active Substance: TRANEXAMIC ACID
     Indication: CATHETER SITE HAEMORRHAGE
     Dosage: 1 G, UNK
     Route: 042
  2. VITAMIN K [Suspect]
     Active Substance: PHYTONADIONE
     Indication: CATHETER SITE HAEMORRHAGE
     Dosage: 10 MG, UNK
     Route: 065
  3. TRANEXAMIC ACID UNKNOWN [Suspect]
     Active Substance: TRANEXAMIC ACID
     Dosage: 1 G, 5 H LATER
     Route: 042

REACTIONS (2)
  - Seizure [Recovered/Resolved]
  - Product use in unapproved indication [Unknown]
